FAERS Safety Report 5022036-2 (Version None)
Quarter: 2006Q2

REPORT INFORMATION
  Report Type: 
  Country: None (occurrence: None)
  Receive Date: 20060609
  Receipt Date: 20060529
  Transmission Date: 20061013
  Serious: Yes (Other)
  Sender: FDA-Public Use
  Company Number: PHBS2006BR08444

PATIENT
  Age: 40 Year
  Sex: Female
  Weight: 64 kg

DRUGS (14)
  1. TOFRANIL [Suspect]
     Indication: OBSESSIVE-COMPULSIVE DISORDER
     Route: 065
  2. FELDENE [Concomitant]
  3. RIVOTRIL [Concomitant]
  4. INIBEX S [Concomitant]
  5. PAROXETINE HYDROCHLORIDE [Concomitant]
  6. SEROQUEL [Concomitant]
  7. VENLAFAXINE HCL [Concomitant]
  8. CYMBALTA [Concomitant]
  9. CONCERTA [Concomitant]
     Dosage: 54 MG/D
  10. RISPERIDONE [Concomitant]
     Dosage: 3 MG/D
  11. CARBOLITIUM [Concomitant]
  12. EQUILID [Concomitant]
  13. BUPROPION HYDROCHLORIDE [Concomitant]
  14. CITALOPRAM HYDROBROMIDE [Concomitant]

REACTIONS (9)
  - DEPRESSION [None]
  - GASTRIC ULCER [None]
  - GASTRITIS [None]
  - GASTROINTESTINAL DISORDER [None]
  - HEADACHE [None]
  - MALAISE [None]
  - SOMNOLENCE [None]
  - STOMACH DISCOMFORT [None]
  - SURGERY [None]
